FAERS Safety Report 6150113-1 (Version None)
Quarter: 2009Q2

REPORT INFORMATION
  Report Type: 
  Country: None (occurrence: None)
  Receive Date: 20090407
  Receipt Date: 20090407
  Transmission Date: 20091009
  Serious: Yes (Hospitalization)
  Sender: FDA-Public Use
  Company Number: None

PATIENT
  Sex: Male
  Weight: 35.9 kg

DRUGS (5)
  1. WINRHO SDF [Suspect]
     Indication: IDIOPATHIC THROMBOCYTOPENIC PURPURA
     Dosage: 1400 MCG ONCE IV BOLUS
     Route: 040
     Dates: start: 20090304, end: 20090304
  2. DIPHENHYDRAMINE HCL [Concomitant]
  3. ACETAMINOPHEN [Concomitant]
  4. EPINEPHRINE [Concomitant]
  5. OXYMETAZOLINE SPRAY [Concomitant]

REACTIONS (2)
  - HAEMOGLOBIN DECREASED [None]
  - PRODUCT QUALITY ISSUE [None]
